FAERS Safety Report 13376376 (Version 1)
Quarter: 2017Q1

REPORT INFORMATION
  Report Type: Spontaneous
  Country: US (occurrence: US)
  Receive Date: 20170328
  Receipt Date: 20170328
  Transmission Date: 20170429
  Serious: Yes (Other)
  Sender: FDA-Public Use
  Company Number: US-HORIZON-PRE-0115-2017

PATIENT
  Sex: Female

DRUGS (9)
  1. RAYOS [Suspect]
     Active Substance: PREDNISONE
     Indication: RHEUMATOID ARTHRITIS
     Dosage: 5 MG Q.H.S.
  2. PRILOSEC [Concomitant]
     Active Substance: OMEPRAZOLE MAGNESIUM
     Indication: PRODUCT USED FOR UNKNOWN INDICATION
  3. ORENCIA [Concomitant]
     Active Substance: ABATACEPT
     Indication: PRODUCT USED FOR UNKNOWN INDICATION
     Dosage: 125 MG WEEKLY
  4. ADVIL [Concomitant]
     Active Substance: IBUPROFEN
     Dosage: P.R.N.
  5. VITAMIN D [Concomitant]
     Active Substance: CHOLECALCIFEROL
  6. NEURONTIN [Concomitant]
     Active Substance: GABAPENTIN
     Indication: PRODUCT USED FOR UNKNOWN INDICATION
     Dosage: 100 MG Q.H.S.
  7. LISINOPRIL. [Concomitant]
     Active Substance: LISINOPRIL
     Indication: PRODUCT USED FOR UNKNOWN INDICATION
  8. MAGNESIUM CITRATE. [Concomitant]
     Active Substance: MAGNESIUM CITRATE
  9. PREDNISONE. [Concomitant]
     Active Substance: PREDNISONE
     Indication: RHEUMATOID ARTHRITIS

REACTIONS (16)
  - Fibromyalgia [Unknown]
  - Sleep disorder [Unknown]
  - Insomnia [Unknown]
  - Photosensitivity reaction [Unknown]
  - Meniscus injury [Unknown]
  - Granuloma annulare [Unknown]
  - Abdominal discomfort [Unknown]
  - Dry mouth [Unknown]
  - Meniscus removal [Unknown]
  - Restless legs syndrome [Unknown]
  - Disease progression [Unknown]
  - Hypertension [Unknown]
  - Dermatitis exfoliative [Unknown]
  - Osteoarthritis [Unknown]
  - Myofascial pain syndrome [Unknown]
  - Wheezing [Unknown]
